FAERS Safety Report 21259322 (Version 1)
Quarter: 2022Q3

REPORT INFORMATION
  Report Type: Spontaneous
  Country: RS (occurrence: RS)
  Receive Date: 20220826
  Receipt Date: 20220826
  Transmission Date: 20221027
  Serious: Yes (Life-Threatening, Other)
  Sender: FDA-Public Use
  Company Number: RS-GLAXOSMITHKLINE-RS2022EME123944

PATIENT

DRUGS (6)
  1. TRELEGY ELLIPTA [Suspect]
     Active Substance: FLUTICASONE FUROATE\UMECLIDINIUM BROMIDE\VILANTEROL TRIFENATATE
     Indication: Chronic obstructive pulmonary disease
     Dosage: UNK, QD 22 MCG+55 MCG+92 MCG
     Route: 055
     Dates: start: 202205, end: 202205
  2. DUROFILIN [Concomitant]
     Indication: Chronic obstructive pulmonary disease
     Dosage: 2 DF, BID 250 MG
     Route: 048
     Dates: end: 2018
  3. ZOLOFT [Concomitant]
     Active Substance: SERTRALINE HYDROCHLORIDE
     Indication: Depression
     Dosage: 50 MG, QD 1 AFTER BREAKFAST
     Route: 048
     Dates: start: 2022, end: 2022
  4. LISINOPRIL [Concomitant]
     Active Substance: LISINOPRIL
     Indication: Hypertension
     Dosage: UNK, QD 1 IN MORNNING (20 MG+ 5 MG TABLETS)
     Route: 048
     Dates: start: 2012
  5. SPIRIVA RESPIMAT [Concomitant]
     Active Substance: TIOTROPIUM BROMIDE
     Indication: Product used for unknown indication
     Dosage: UNK 2.5 MCG
  6. SERETIDE [Concomitant]
     Active Substance: FLUTICASONE PROPIONATE\SALMETEROL XINAFOATE
     Indication: Product used for unknown indication
     Dosage: UNK 250 MCG+50 MCG

REACTIONS (3)
  - Wheezing [Recovered/Resolved]
  - Cough [Recovered/Resolved]
  - Dyspnoea [Recovered/Resolved]

NARRATIVE: CASE EVENT DATE: 20220501
